FAERS Safety Report 9859222 (Version 2)
Quarter: 2014Q1

REPORT INFORMATION
  Report Type: Report from Study
  Country: PH (occurrence: PH)
  Receive Date: 20140131
  Receipt Date: 20140131
  Transmission Date: 20141002
  Serious: Yes (Death, Hospitalization, Other)
  Sender: FDA-Public Use
  Company Number: PH-BRISTOL-MYERS SQUIBB COMPANY-16369050

PATIENT
  Age: 66 Year
  Sex: Female

DRUGS (3)
  1. APIXABAN [Suspect]
     Indication: THROMBOSIS PROPHYLAXIS
     Dosage: 1 DF - 10UNITS NOS
     Route: 048
     Dates: start: 20110105, end: 20120124
  2. METFORMIN [Concomitant]
     Dates: start: 20081205, end: 20120124
  3. JANUMET [Concomitant]
     Dosage: 1DF= 50/500 MG
     Dates: start: 20081205, end: 20120124

REACTIONS (2)
  - Cerebral haemorrhage [Fatal]
  - Brain herniation [Fatal]
